FAERS Safety Report 12137352 (Version 1)
Quarter: 2016Q1

REPORT INFORMATION
  Report Type: Spontaneous
  Country: US (occurrence: US)
  Receive Date: 20160302
  Receipt Date: 20160302
  Transmission Date: 20160526
  Serious: Yes (Hospitalization)
  Sender: FDA-Public Use
  Company Number: US-B.I. PHARMACEUTICALS,INC./RIDGEFIELD-2016-BI-11744BP

PATIENT
  Age: 50 Year
  Sex: Male
  Weight: 93.2 kg

DRUGS (15)
  1. DETEMIR [Concomitant]
     Dosage: DOSE PER APP: 44 UNITS IN AM 45 UNIT IN PM; DAILY DOSE: 89UNITS
     Route: 058
     Dates: start: 20160224
  2. SINGULAIR [Concomitant]
     Active Substance: MONTELUKAST SODIUM
     Indication: ASTHMA
     Dosage: 10 MG
     Route: 048
  3. DETEMIR [Concomitant]
     Indication: TYPE 2 DIABETES MELLITUS
     Dosage: DOSE PER APP: 44 UNITS IN AM 45 UNIT IN PM; DAILY DOSE: 89UNITS
     Route: 058
     Dates: end: 20160216
  4. JANUMET [Concomitant]
     Active Substance: METFORMIN HYDROCHLORIDE\SITAGLIPTIN PHOSPHATE
     Dosage: DOSE PER APP: 50MG/500MG; DAILY DOSE: 100MG/ 1000MG
     Route: 048
     Dates: start: 20160222
  5. NOVOLOG [Concomitant]
     Active Substance: INSULIN ASPART
     Dosage: 1 ANZ
     Route: 058
     Dates: start: 20160220, end: 20160223
  6. LISINOPRIL. [Concomitant]
     Active Substance: LISINOPRIL
     Indication: PRODUCT USED FOR UNKNOWN INDICATION
     Dosage: 10 MG
     Route: 048
  7. SINGULAIR [Concomitant]
     Active Substance: MONTELUKAST SODIUM
     Indication: RHINITIS ALLERGIC
  8. JARDIANCE [Suspect]
     Active Substance: EMPAGLIFLOZIN
     Indication: TYPE 2 DIABETES MELLITUS
     Dosage: 25 MG
     Route: 048
     Dates: start: 2015, end: 20160216
  9. NOVOLOG [Concomitant]
     Active Substance: INSULIN ASPART
     Indication: TYPE 2 DIABETES MELLITUS
     Dosage: 1 ANZ
     Route: 058
     Dates: end: 20160216
  10. LEXAPRO [Concomitant]
     Active Substance: ESCITALOPRAM OXALATE
     Indication: DEPRESSION
     Dosage: 20 MG
     Route: 048
  11. JANUMET [Concomitant]
     Active Substance: METFORMIN HYDROCHLORIDE\SITAGLIPTIN PHOSPHATE
     Indication: PRODUCT USED FOR UNKNOWN INDICATION
     Dosage: DOSE PER APP: 50MG/500MG; DAILY DOSE: 100MG/1000MG
     Route: 048
     Dates: end: 20160216
  12. AMITRIPTYLINE [Concomitant]
     Active Substance: AMITRIPTYLINE
     Indication: PRODUCT USED FOR UNKNOWN INDICATION
     Dosage: 25 MG
     Route: 048
  13. DETEMIR [Concomitant]
     Dosage: DOSE PER APP: 44 UNITS IN AM 45 UNIT IN PM; DAILY DOSE: 89UNITS
     Route: 058
     Dates: start: 20160220, end: 20160222
  14. NOVOLOG [Concomitant]
     Active Substance: INSULIN ASPART
     Dosage: 1 ANZ
     Route: 058
     Dates: start: 20160224
  15. ROSUVASTATIN [Concomitant]
     Active Substance: ROSUVASTATIN
     Indication: DYSLIPIDAEMIA
     Dosage: 20 MG
     Route: 048

REACTIONS (13)
  - Cough [Not Recovered/Not Resolved]
  - Hypokalaemia [Recovered/Resolved]
  - Oesophagitis [Not Recovered/Not Resolved]
  - Abdominal pain [Recovered/Resolved]
  - Diabetic ketoacidosis [Recovered/Resolved]
  - Oesophageal ulcer [Not Recovered/Not Resolved]
  - Tachypnoea [Unknown]
  - Leukocytosis [Recovered/Resolved]
  - Hyperkalaemia [Recovered/Resolved]
  - Acute kidney injury [Recovered/Resolved]
  - Hypophosphataemia [Recovered/Resolved]
  - Diabetic ketoacidosis [Recovered/Resolved]
  - Hyperkalaemia [Recovered/Resolved]

NARRATIVE: CASE EVENT DATE: 201602
